FAERS Safety Report 8567504-1 (Version None)
Quarter: 2012Q3

REPORT INFORMATION
  Report Type: 
  Country: None (occurrence: None)
  Receive Date: 20120803
  Receipt Date: 20110920
  Transmission Date: 20120928
  Serious: No
  Sender: FDA-Public Use
  Company Number: US-ABBOTT-11P-163-0855667-00

PATIENT
  Sex: Female
  Weight: 70.37 kg

DRUGS (2)
  1. NEXIUM [Concomitant]
     Indication: PRODUCT USED FOR UNKNOWN INDICATION
  2. NIASPAN [Suspect]
     Indication: HIGH DENSITY LIPOPROTEIN INCREASED
     Dosage: AT BEDTIME
     Dates: start: 20110916

REACTIONS (6)
  - SKIN WARM [None]
  - ERYTHEMA [None]
  - PRURITUS [None]
  - CHILLS [None]
  - FLUSHING [None]
  - SKIN BURNING SENSATION [None]
